FAERS Safety Report 21089564 (Version 1)
Quarter: 2022Q3

REPORT INFORMATION
  Report Type: Spontaneous
  Country: JP (occurrence: JP)
  Receive Date: 20220715
  Receipt Date: 20220715
  Transmission Date: 20221027
  Serious: Yes (Other)
  Sender: FDA-Public Use
  Company Number: JP-NAPPMUNDI-GBR-2022-0099943

PATIENT
  Age: 96 Year
  Sex: Female

DRUGS (1)
  1. UNIPHYL [Suspect]
     Active Substance: THEOPHYLLINE ANHYDROUS
     Indication: Product used for unknown indication
     Dosage: 200 MILLIGRAM, DAILY
     Route: 065

REACTIONS (2)
  - Foreign body in throat [Unknown]
  - Dysphagia [Unknown]

NARRATIVE: CASE EVENT DATE: 20220419
